FAERS Safety Report 8774810 (Version 2)
Quarter: 2012Q4

REPORT INFORMATION
  Report Type: 
  Country: US (occurrence: US)
  Receive Date: 20120910
  Receipt Date: 20121114
  Transmission Date: 20130627
  Serious: Yes (Death)
  Sender: FDA-Public Use
  Company Number: US-ROCHE-1117159

PATIENT
  Age: 64 Year
  Sex: Female

DRUGS (6)
  1. ZELBORAF [Suspect]
     Indication: PRODUCT USED FOR UNKNOWN INDICATION
     Route: 048
     Dates: start: 201207
  2. ZELBORAF [Suspect]
     Dosage: 960
     Route: 048
     Dates: start: 20120716
  3. METOPROLOL [Concomitant]
  4. OXYCODONE [Concomitant]
  5. AMLODIPINE [Concomitant]
  6. KCL [Concomitant]

REACTIONS (1)
  - Toxic epidermal necrolysis [Fatal]
